FAERS Safety Report 7830586-6 (Version None)
Quarter: 2011Q4

REPORT INFORMATION
  Report Type: 
  Country: None (occurrence: None)
  Receive Date: 20111021
  Receipt Date: 20111017
  Transmission Date: 20120403
  Serious: Yes (Other)
  Sender: FDA-Public Use
  Company Number: US-PFIZER INC-2011249271

PATIENT
  Sex: Female
  Weight: 56.689 kg

DRUGS (4)
  1. ALAVERT [Suspect]
     Indication: SEASONAL ALLERGY
     Dosage: 10 MG, 1X/DAY
     Route: 048
     Dates: start: 20110101
  2. GABAPENTIN [Concomitant]
     Indication: ANTIINFLAMMATORY THERAPY
     Dosage: UNK
  3. ALAVERT [Suspect]
     Dosage: 5 MG DAILY
  4. NAPROXEN [Concomitant]
     Dosage: UNK

REACTIONS (2)
  - SPINAL CORD DISORDER [None]
  - WEIGHT DECREASED [None]
